FAERS Safety Report 24843053 (Version 1)
Quarter: 2025Q1

REPORT INFORMATION
  Report Type: Report from Study
  Country: US (occurrence: US)
  Receive Date: 20250115
  Receipt Date: 20250115
  Transmission Date: 20250408
  Serious: No
  Sender: HRA PHARMA
  Company Number: US-ORG100014127-2024000095

PATIENT
  Age: 53 Year
  Sex: Male

DRUGS (19)
  1. LYSODREN [Suspect]
     Active Substance: MITOTANE
     Indication: Adrenocortical carcinoma
     Dosage: 1 TABLETS FOUR TIMES DAILY
     Route: 048
     Dates: start: 20240321
  2. LYSODREN [Suspect]
     Active Substance: MITOTANE
     Indication: Adrenocortical carcinoma
     Dosage: 500 MG: 1 TABLET TWICE DAILY AND 2 TABLETS TWICE DAILY (I.E., 4 TIMES A DAY)
     Route: 048
  3. AMLODIPINE TAB 5MG [Concomitant]
     Indication: Product used for unknown indication
  4. Betamethasone powder sodium phosphate [Concomitant]
     Indication: Product used for unknown indication
  5. CLOTRIMAZOLE CREAM 1% [Concomitant]
     Active Substance: CLOTRIMAZOLE
     Indication: Product used for unknown indication
  6. Dexamethason tablet 4mg [Concomitant]
     Indication: Product used for unknown indication
  7. GABAPENTIN CAP 100MG [Concomitant]
     Indication: Product used for unknown indication
  8. HYDROCHLOROTHIAZIDE [Concomitant]
     Active Substance: HYDROCHLOROTHIAZIDE
     Indication: Product used for unknown indication
  9. INVOKANA TAB 100MG [Concomitant]
     Indication: Product used for unknown indication
  10. Losartan potassium tablet 100mg [Concomitant]
     Indication: Product used for unknown indication
  11. METFORMIN [Concomitant]
     Active Substance: METFORMIN HYDROCHLORIDE
     Indication: Product used for unknown indication
  12. METOPROL TAR TAB 25MG [Concomitant]
     Indication: Product used for unknown indication
  13. NOVOLOG MIX INJ 70/30 [Concomitant]
     Indication: Product used for unknown indication
  14. Ondansetron tablet 8mg [Concomitant]
     Indication: Product used for unknown indication
  15. Prochlorperazine tablet 10mg [Concomitant]
     Indication: Product used for unknown indication
  16. tadalafil tablet 20mg [Concomitant]
     Indication: Product used for unknown indication
  17. TOUJEO MAX INJ 300/ML [Concomitant]
     Indication: Product used for unknown indication
  18. TRULICITY INJ 1.5/0.5 [Concomitant]
     Indication: Product used for unknown indication
  19. SILDENAFIL TAB 100MG [Concomitant]
     Indication: Product used for unknown indication

REACTIONS (6)
  - Oropharyngeal pain [Recovering/Resolving]
  - Dysphonia [Not Recovered/Not Resolved]
  - Dysphagia [Not Recovered/Not Resolved]
  - Ageusia [Not Recovered/Not Resolved]
  - Pyrexia [Not Recovered/Not Resolved]
  - Taste disorder [Not Recovered/Not Resolved]

NARRATIVE: CASE EVENT DATE: 20240101
